FAERS Safety Report 5384214-2 (Version None)
Quarter: 2007Q3

REPORT INFORMATION
  Report Type: 
  Country: None (occurrence: None)
  Receive Date: 20070711
  Receipt Date: 20070706
  Transmission Date: 20080115
  Serious: Yes (Other)
  Sender: FDA-Public Use
  Company Number: B0478577A

PATIENT
  Age: 66 Year
  Sex: Female

DRUGS (2)
  1. AMOXICILLIN + CLAVULANATE POTASSIUM [Suspect]
     Indication: TOOTH ABSCESS
     Dosage: 1000MG TWICE PER DAY
     Route: 048
     Dates: start: 20070328, end: 20070331
  2. DEXIBUPROFEN [Suspect]
     Indication: TOOTH ABSCESS
     Dosage: 400MG PER DAY
     Route: 048
     Dates: start: 20070330, end: 20070331

REACTIONS (2)
  - PRURITUS [None]
  - TRANSAMINASES INCREASED [None]
